FAERS Safety Report 8234374-0 (Version None)
Quarter: 2012Q1

REPORT INFORMATION
  Report Type: 
  Country: None (occurrence: None)
  Receive Date: 20120326
  Receipt Date: 20120322
  Transmission Date: 20120608
  Serious: Yes (Hospitalization)
  Sender: FDA-Public Use
  Company Number: IT-BAYER-2012-028562

PATIENT
  Age: 77 Year
  Sex: Male

DRUGS (1)
  1. ASPIRIN [Suspect]
     Dosage: DAILY DOSE 1 DF
     Route: 048
     Dates: start: 20110228, end: 20120227

REACTIONS (2)
  - SHOCK HAEMORRHAGIC [None]
  - RECTAL HAEMORRHAGE [None]
